FAERS Safety Report 9201599 (Version 2)
Quarter: 2013Q2

REPORT INFORMATION
  Report Type: Spontaneous
  Country: US (occurrence: US)
  Receive Date: 20130401
  Receipt Date: 20130510
  Transmission Date: 20140414
  Serious: Yes (Other)
  Sender: FDA-Public Use
  Company Number: US-PFIZER INC-2013103236

PATIENT
  Age: 58 Year
  Sex: Male
  Weight: 70.3 kg

DRUGS (3)
  1. LIPITOR [Suspect]
     Indication: CARDIAC DISORDER
     Dosage: 40 MG, DAILY
     Dates: start: 201106, end: 201303
  2. ATORVASTATIN CALCIUM [Suspect]
     Indication: CARDIAC DISORDER
     Dosage: 40 MG, DAILY
     Dates: start: 201303
  3. ASPIRIN [Concomitant]
     Indication: CARDIAC DISORDER
     Dosage: 162.5 MG (HALF OF 325MG), DAILY

REACTIONS (2)
  - Pneumonia [Recovered/Resolved]
  - Abdominal discomfort [Not Recovered/Not Resolved]
